FAERS Safety Report 6230659-8 (Version None)
Quarter: 2009Q2

REPORT INFORMATION
  Report Type: 
  Country: None (occurrence: None)
  Receive Date: 20090611
  Receipt Date: 20090527
  Transmission Date: 20091009
  Serious: Yes (Hospitalization)
  Sender: FDA-Public Use
  Company Number: 8028721

PATIENT
  Age: 55 Year
  Sex: Female
  Weight: 86 kg

DRUGS (3)
  1. CDP870 [Suspect]
     Indication: RHEUMATOID ARTHRITIS
     Dosage: 400 MG 1/2W SC
     Route: 058
     Dates: start: 20050808, end: 20060724
  2. CDP870 [Suspect]
     Indication: RHEUMATOID ARTHRITIS
     Dosage: 400 MG 1/2W SC
     Route: 058
     Dates: start: 20060808, end: 20071211
  3. CDP870 [Suspect]
     Indication: RHEUMATOID ARTHRITIS
     Dosage: 200 MG SC
     Route: 058
     Dates: start: 20080106

REACTIONS (3)
  - CHEST PAIN [None]
  - PLEURAL EFFUSION [None]
  - PNEUMONIA [None]
